FAERS Safety Report 24200622 (Version 1)
Quarter: 2024Q3

REPORT INFORMATION
  Report Type: Spontaneous
  Country: US (occurrence: US)
  Receive Date: 20240812
  Receipt Date: 20240812
  Transmission Date: 20241017
  Serious: No
  Sender: ANI
  Company Number: US-ANIPHARMA-2024-US-036810

PATIENT
  Age: 80 Year
  Sex: Female
  Weight: 68.95 kg

DRUGS (1)
  1. CORTICOTROPIN [Suspect]
     Active Substance: CORTICOTROPIN
     Indication: Nephrotic syndrome
     Dosage: INJECT 80 UNITS (1 ML) UNDER THE SKIN TWO TIMES A WEEK AS DIRECTED. **VIAL EXPIRES 28 DAYS AFTER 1ST
     Route: 058
     Dates: start: 202301

REACTIONS (6)
  - Blood pressure increased [Recovering/Resolving]
  - Dehydration [Recovered/Resolved]
  - Heart rate decreased [Unknown]
  - Contraindicated product administered [Not Recovered/Not Resolved]
  - Headache [Unknown]
  - Hyperhidrosis [Unknown]

NARRATIVE: CASE EVENT DATE: 20230101
